FAERS Safety Report 10249608 (Version 1)
Quarter: 2014Q2

REPORT INFORMATION
  Report Type: Spontaneous
  Country: US (occurrence: US)
  Receive Date: 20140620
  Receipt Date: 20140620
  Transmission Date: 20141212
  Serious: No
  Sender: FDA-Public Use
  Company Number: US-PFIZER INC-2014166155

PATIENT
  Sex: Female

DRUGS (1)
  1. SILVADENE [Suspect]
     Indication: VULVOVAGINAL BURNING SENSATION
     Dosage: UNK

REACTIONS (2)
  - Dysuria [Unknown]
  - Product quality issue [Unknown]
